FAERS Safety Report 13004436 (Version 2)
Quarter: 2017Q2

REPORT INFORMATION
  Report Type: Spontaneous
  Country: CA (occurrence: CA)
  Receive Date: 20161207
  Receipt Date: 20170508
  Transmission Date: 20170830
  Serious: Yes (Other)
  Sender: FDA-Public Use
  Company Number: CA-ROCHE-1863663

PATIENT
  Age: 21 Year
  Sex: Female
  Weight: 59 kg

DRUGS (3)
  1. XOLAIR [Suspect]
     Active Substance: OMALIZUMAB
     Route: 058
  2. XOLAIR [Suspect]
     Active Substance: OMALIZUMAB
     Route: 058
  3. XOLAIR [Suspect]
     Active Substance: OMALIZUMAB
     Indication: ASTHMA
     Route: 058
     Dates: start: 20060220

REACTIONS (7)
  - Cough [Unknown]
  - Forced expiratory volume decreased [Unknown]
  - Asthma [Unknown]
  - Weight decreased [Unknown]
  - Dyspnoea [Unknown]
  - Malaise [Unknown]
  - Middle insomnia [Unknown]

NARRATIVE: CASE EVENT DATE: 20160303
